FAERS Safety Report 10070746 (Version 1)
Quarter: 2014Q2

REPORT INFORMATION
  Report Type: Spontaneous
  Country: US (occurrence: US)
  Receive Date: 20140410
  Receipt Date: 20140410
  Transmission Date: 20141212
  Serious: No
  Sender: FDA-Public Use
  Company Number: US-PFIZER INC-2014099025

PATIENT
  Age: 76 Year
  Sex: Female

DRUGS (3)
  1. LIPITOR [Suspect]
     Dosage: 20 MG, 1X/DAY (AT BED TIME)
     Route: 048
  2. BISOPROLOL / HCTZ [Suspect]
     Dosage: 5-6 ML, UNK
  3. EVISTA [Suspect]
     Dosage: 60 ML, UNK

REACTIONS (1)
  - Drug hypersensitivity [Unknown]
